FAERS Safety Report 15348514 (Version 1)
Quarter: 2018Q4

REPORT INFORMATION
  Report Type: Spontaneous
  Country: US (occurrence: US)
  Receive Date: 20180904
  Receipt Date: 20180904
  Transmission Date: 20190204
  Serious: No
  Sender: FDA-Public Use
  Company Number: US-OREXO US, INC.-ORE201804-000030

PATIENT
  Sex: Male

DRUGS (1)
  1. ZUBSOLV [Suspect]
     Active Substance: BUPRENORPHINE HYDROCHLORIDE\NALOXONE HYDROCHLORIDE
     Indication: PAIN
     Dosage: 1.4/0.36 MG TABLET THREE TIMES DAILY
     Route: 060
     Dates: start: 201712

REACTIONS (1)
  - Product use in unapproved indication [Unknown]
